FAERS Safety Report 24166045 (Version 1)
Quarter: 2024Q3

REPORT INFORMATION
  Report Type: Spontaneous
  Country: HR (occurrence: HR)
  Receive Date: 20240802
  Receipt Date: 20240802
  Transmission Date: 20241016
  Serious: Yes (Other)
  Sender: TAKEDA
  Company Number: HR-TAKEDA-2024TUS076983

PATIENT
  Age: 59 Year
  Sex: Male

DRUGS (11)
  1. FEBUXOSTAT [Suspect]
     Active Substance: FEBUXOSTAT
     Indication: Gout
     Dosage: UNK
     Route: 048
     Dates: start: 20240705, end: 20240709
  2. DEXKETOPROFEN\TRAMADOL [Concomitant]
     Active Substance: DEXKETOPROFEN\TRAMADOL
     Indication: Gout
     Dosage: UNK
     Route: 048
  3. LEVOTHYROXINE SODIUM [Concomitant]
     Active Substance: LEVOTHYROXINE SODIUM
     Indication: Hypothyroidism
     Dosage: 50 MILLIGRAM
     Route: 048
  4. NEBIVOLOL [Concomitant]
     Active Substance: NEBIVOLOL
     Indication: Dressler^s syndrome
     Dosage: 5 MILLIGRAM
     Route: 048
  5. ATORVASTATIN [Concomitant]
     Active Substance: ATORVASTATIN
     Indication: Acute myocardial infarction
     Dosage: 80 MILLIGRAM
     Route: 048
  6. CLOPIDOGREL BISULFATE [Concomitant]
     Active Substance: CLOPIDOGREL BISULFATE
     Indication: Coronary angioplasty
     Dosage: 75 MILLIGRAM
     Route: 048
  7. Folacin [Concomitant]
     Indication: Vitamin B complex deficiency
     Dosage: 5 MILLIGRAM
     Route: 048
  8. PREDNISONE [Concomitant]
     Active Substance: PREDNISONE
     Indication: Thrombocytopenia
     Dosage: 20 MILLIGRAM
     Route: 048
  9. MOXONIDINE [Concomitant]
     Active Substance: MOXONIDINE
     Indication: Essential hypertension
     Dosage: 0.4 MILLIGRAM
     Route: 048
  10. UNSPECIFIED INGREDIENT [Concomitant]
     Active Substance: UNSPECIFIED INGREDIENT
     Indication: Essential hypertension
     Dosage: UNK
     Route: 048
  11. PANTOPRAZOLE SODIUM [Concomitant]
     Active Substance: PANTOPRAZOLE SODIUM
     Indication: Prophylaxis
     Dosage: 40 MILLIGRAM
     Route: 048

REACTIONS (3)
  - Oedema peripheral [Recovered/Resolved]
  - Asthenia [Recovered/Resolved]
  - Blood pressure increased [Recovered/Resolved]

NARRATIVE: CASE EVENT DATE: 20240706
